FAERS Safety Report 4902347-9 (Version None)
Quarter: 2006Q1

REPORT INFORMATION
  Report Type: 
  Country: None (occurrence: None)
  Receive Date: 20060202
  Receipt Date: 20060127
  Transmission Date: 20060701
  Serious: Yes (Disabling)
  Sender: FDA-Public Use
  Company Number: FRP06000058

PATIENT
  Age: 38 Year
  Sex: Female

DRUGS (6)
  1. ACTONEL [Suspect]
     Indication: OSTEOPOROSIS
     Dosage: 35 MG, 1/WEEK, ORAL
     Route: 048
     Dates: start: 20050124, end: 20051114
  2. OMEPRAZOLE [Suspect]
     Dosage: 20 MG DAILY ORAL
     Route: 048
     Dates: start: 20050124, end: 20051114
  3. PREDNISONE [Suspect]
     Indication: RHEUMATOID ARTHRITIS
     Dosage: 7 MG DAILY ORAL
     Route: 048
     Dates: start: 20050124, end: 20051114
  4. HYDROCORTISONE [Suspect]
     Indication: RHEUMATOID ARTHRITIS
     Dosage: 20 MG DAILY ORAL
     Route: 048
     Dates: start: 20050124, end: 20051114
  5. METHOTREXATE [Suspect]
     Indication: RHEUMATOID ARTHRITIS
     Dosage: ORAL
     Route: 048
     Dates: start: 20050124, end: 20051114
  6. ENBREL [Suspect]
     Indication: RHEUMATOID ARTHRITIS
     Dosage: ORAL
     Route: 048
     Dates: start: 20050124, end: 20051114

REACTIONS (2)
  - ABORTION SPONTANEOUS [None]
  - DRUG EXPOSURE DURING PREGNANCY [None]
